FAERS Safety Report 4721908-3 (Version None)
Quarter: 2005Q3

REPORT INFORMATION
  Report Type: 
  Country: None (occurrence: None)
  Receive Date: 20050720
  Receipt Date: 20050711
  Transmission Date: 20060218
  Serious: Yes (Hospitalization)
  Sender: FDA-Public Use
  Company Number: 2005-06-1455

PATIENT
  Age: 28 Year
  Sex: Female

DRUGS (1)
  1. CLARITIN [Suspect]
     Indication: SEASONAL ALLERGY
     Dosage: 10 MG ORAL
     Route: 048
     Dates: start: 20050401, end: 20050501

REACTIONS (9)
  - ALANINE AMINOTRANSFERASE INCREASED [None]
  - ANOREXIA [None]
  - ASPARTATE AMINOTRANSFERASE INCREASED [None]
  - BLOOD BILIRUBIN INCREASED [None]
  - HEPATIC FUNCTION ABNORMAL [None]
  - LIVER DISORDER [None]
  - NASOPHARYNGITIS [None]
  - NAUSEA [None]
  - STOMACH DISCOMFORT [None]
